FAERS Safety Report 4284688-4 (Version None)
Quarter: 2004Q1

REPORT INFORMATION
  Report Type: 
  Country: None (occurrence: None)
  Receive Date: 20040130
  Receipt Date: 20040123
  Transmission Date: 20041129
  Serious: Yes (Hospitalization)
  Sender: FDA-Public Use
  Company Number: 2004-01-1480

PATIENT
  Age: 62 Year
  Sex: Male

DRUGS (4)
  1. INTRON A [Suspect]
     Indication: HEPATITIS C
     Dosage: 6 MU INTRAMUSCULAR
     Route: 030
     Dates: start: 20031201, end: 20031201
  2. .. [Suspect]
  3. REBETOL [Suspect]
     Indication: HEPATITIS C
     Dosage: 600 MG ORAL
     Route: 048
  4. .. [Suspect]

REACTIONS (1)
  - RETINOPATHY [None]
